FAERS Safety Report 26003168 (Version 1)
Quarter: 2025Q4

REPORT INFORMATION
  Report Type: Spontaneous
  Country: GB (occurrence: GB)
  Receive Date: 20251106
  Receipt Date: 20251106
  Transmission Date: 20260117
  Serious: Yes (Other)
  Sender: AUROBINDO
  Company Number: GB-BoehringerIngelheim-2025-BI-102791

PATIENT
  Age: 78 Year
  Sex: Male
  Weight: 88 kg

DRUGS (5)
  1. NINTEDANIB [Suspect]
     Active Substance: NINTEDANIB
     Indication: Idiopathic pulmonary fibrosis
     Dosage: UNK
     Route: 065
     Dates: start: 202307
  2. NINTEDANIB [Suspect]
     Active Substance: NINTEDANIB
     Dosage: 100 MILLIGRAM
     Route: 065
     Dates: start: 2025
  3. TAMSULOSIN [Concomitant]
     Active Substance: TAMSULOSIN
     Indication: Product used for unknown indication
     Dosage: UNK
     Route: 065
  4. ASPIRIN [Concomitant]
     Active Substance: ASPIRIN
     Indication: Product used for unknown indication
     Dosage: UNK
     Route: 065
  5. SILDENAFIL [Concomitant]
     Active Substance: SILDENAFIL
     Indication: Product used for unknown indication
     Dosage: PRN
     Route: 065

REACTIONS (1)
  - Idiopathic pulmonary fibrosis [Unknown]

NARRATIVE: CASE EVENT DATE: 20250101
